FAERS Safety Report 8888690 (Version 5)
Quarter: 2013Q2

REPORT INFORMATION
  Report Type: Spontaneous
  Country: US (occurrence: US)
  Receive Date: 20121106
  Receipt Date: 20130610
  Transmission Date: 20140414
  Serious: Yes (Death, Life-Threatening, Hospitalization)
  Sender: FDA-Public Use
  Company Number: US-GLAXOSMITHKLINE-A1000015A

PATIENT
  Age: 47 Year
  Sex: Male

DRUGS (2)
  1. FLOLAN [Suspect]
     Indication: PRODUCT USED FOR UNKNOWN INDICATION
     Dosage: 35NGKM CONTINUOUS
     Route: 042
     Dates: start: 20090521
  2. TRACLEER [Concomitant]

REACTIONS (4)
  - Disease progression [Fatal]
  - Pulmonary arterial hypertension [Unknown]
  - Device related infection [Recovered/Resolved]
  - Oxygen saturation decreased [Recovered/Resolved]
